FAERS Safety Report 9278039 (Version 1)
Quarter: 2013Q2

REPORT INFORMATION
  Report Type: Spontaneous
  Country: US (occurrence: US)
  Receive Date: 20130508
  Receipt Date: 20130508
  Transmission Date: 20140414
  Serious: No
  Sender: FDA-Public Use
  Company Number: US-BAYER-2013-057176

PATIENT
  Sex: Female

DRUGS (1)
  1. SAFYRAL [Suspect]
     Indication: SWELLING

REACTIONS (6)
  - Weight increased [None]
  - Breast tenderness [None]
  - Fatigue [None]
  - Discomfort [None]
  - Off label use [None]
  - Hypomenorrhoea [None]
